FAERS Safety Report 5782107-X (Version None)
Quarter: 2008Q2

REPORT INFORMATION
  Report Type: 
  Country: None (occurrence: None)
  Receive Date: 20080618
  Receipt Date: 20080610
  Transmission Date: 20081010
  Serious: Yes (Hospitalization)
  Sender: FDA-Public Use
  Company Number: 2008JP002740

PATIENT
  Age: 81 Year
  Sex: Female
  Weight: 61.2 kg

DRUGS (12)
  1. VESICARE [Suspect]
     Indication: HYPERTONIC BLADDER
     Dosage: 2.5 MG, BID, ORAL
     Route: 048
     Dates: start: 20070614, end: 20080414
  2. SAIKOKEISHITOU  (HERBAL EXTRACT NOS) [Concomitant]
  3. SELBEX (TEPRENONE) [Concomitant]
  4. KAMAG G (MAGNESIUM OXIDE) [Concomitant]
  5. SUCRALFATE [Concomitant]
  6. ASPIRIN [Concomitant]
  7. GASMOTIN (MOSAPRIDE CITRATE) [Concomitant]
  8. CLONAZEPAM [Concomitant]
  9. AMOBAN (ZOPICLONE) [Concomitant]
  10. RABEPRAZOLE SODIUM [Concomitant]
  11. TECIPUL (SETIPTILINE MALEATE) [Concomitant]
  12. DEPAKENE [Concomitant]

REACTIONS (8)
  - BLOOD CREATINE PHOSPHOKINASE INCREASED [None]
  - CELLULITIS [None]
  - DEHYDRATION [None]
  - LOSS OF CONSCIOUSNESS [None]
  - MYALGIA [None]
  - PAIN [None]
  - PERIARTHRITIS [None]
  - VOMITING [None]
